FAERS Safety Report 22925511 (Version 5)
Quarter: 2024Q2

REPORT INFORMATION
  Report Type: Spontaneous
  Country: US (occurrence: US)
  Receive Date: 20230908
  Receipt Date: 20240403
  Transmission Date: 20240716
  Serious: Yes (Hospitalization)
  Sender: FDA-Public Use
  Company Number: US-PFIZER INC-202300294628

PATIENT
  Age: 72 Year
  Sex: Female
  Weight: 95.238 kg

DRUGS (15)
  1. PAXLOVID [Suspect]
     Active Substance: NIRMATRELVIR\RITONAVIR
     Indication: COVID-19 treatment
     Dosage: [NIRMATRELVIR 300 MG]/[RITONAVIR 100 MG]; 2X/DAY
     Dates: start: 20230823, end: 20230827
  2. PAXLOVID [Suspect]
     Active Substance: NIRMATRELVIR\RITONAVIR
     Dosage: UNK
     Dates: start: 20231218
  3. PAXLOVID [Suspect]
     Active Substance: NIRMATRELVIR\RITONAVIR
     Dosage: UNK
     Dates: start: 202309
  4. TYLENOL [Suspect]
     Active Substance: ACETAMINOPHEN
     Indication: Hypertension
     Dosage: 500 MG ONCE OR TWICE A DAY AS NEEDED
     Dates: start: 20230822
  5. TYLENOL [Suspect]
     Active Substance: ACETAMINOPHEN
     Indication: Pyrexia
  6. TYLENOL [Suspect]
     Active Substance: ACETAMINOPHEN
     Indication: Arthritis
  7. FAMOTIDINE [Concomitant]
     Active Substance: FAMOTIDINE
     Dosage: 20 MG, 2X/DAY
     Dates: start: 2021
  8. SUPER OMEGA 3 [FISH OIL] [Concomitant]
     Dosage: 1200 MG, 3X/DAY
     Dates: start: 2018
  9. COENZYME B-COMPLEX CAPS [Concomitant]
     Dosage: 500 UG, 2X/DAY
     Dates: start: 2022
  10. CALCIUM CITRATE [Concomitant]
     Active Substance: CALCIUM CITRATE
     Dosage: 400 MG
  11. VITAMIN D3 [Concomitant]
     Active Substance: CHOLECALCIFEROL
     Dosage: 50 UG
  12. ADULT MULTIVITAMIN [Concomitant]
     Dosage: UNK
  13. COVID-19 VACCINE [Concomitant]
     Indication: COVID-19 immunisation
     Dosage: DOSE NUMBER UNKNOWN (BOOSTER), SINGLE
     Dates: start: 202311, end: 202311
  14. INFLUENZA VIRUS VACCINE [Concomitant]
     Active Substance: INFLUENZA VIRUS VACCINE
     Indication: Immunisation
     Dosage: DOSE NUMBER UNKNOWN, SINGLE
     Dates: start: 202310, end: 202310
  15. UNSPECIFIED INGREDIENT [Concomitant]
     Active Substance: UNSPECIFIED INGREDIENT
     Indication: Immunisation
     Dosage: DOSE NUMBER UNKNOWN, SINGLE
     Dates: start: 202401, end: 202401

REACTIONS (12)
  - Dysgeusia [Recovered/Resolved]
  - Taste disorder [Recovered/Resolved]
  - Seasonal allergy [Recovered/Resolved]
  - Heart rate increased [Recovered/Resolved]
  - Malaise [Recovering/Resolving]
  - Immune system disorder [Recovering/Resolving]
  - Throat irritation [Unknown]
  - Cough [Recovering/Resolving]
  - Rhinorrhoea [Recovering/Resolving]
  - Productive cough [Unknown]
  - Dyspnoea [Unknown]
  - Hypersensitivity [Recovered/Resolved]

NARRATIVE: CASE EVENT DATE: 20230101
